FAERS Safety Report 25341992 (Version 5)
Quarter: 2025Q3

REPORT INFORMATION
  Report Type: Spontaneous
  Country: US (occurrence: US)
  Receive Date: 20250521
  Receipt Date: 20250908
  Transmission Date: 20251021
  Serious: Yes (Other)
  Sender: PFIZER
  Company Number: US-PFIZER INC-202400304783

PATIENT
  Age: 62 Year
  Sex: Male

DRUGS (6)
  1. LORBRENA [Suspect]
     Active Substance: LORLATINIB
     Indication: Lung carcinoma cell type unspecified stage IV
     Dosage: 100 MG, 1X/DAY
     Route: 048
  2. LORBRENA [Suspect]
     Active Substance: LORLATINIB
     Indication: Non-small cell lung cancer metastatic
  3. LORBRENA [Suspect]
     Active Substance: LORLATINIB
     Indication: Lung neoplasm malignant
     Dosage: TAKE 3 TABLETS (75MG) BY MOUTH ONCE DAILY
     Route: 048
     Dates: start: 20241109, end: 202501
  4. LORBRENA [Suspect]
     Active Substance: LORLATINIB
     Indication: Lymphadenopathy
     Dosage: 50 MG, DAILY (CUTTING 100 MG IN HALF)
     Route: 048
     Dates: start: 202504
  5. ELIQUIS [Concomitant]
     Active Substance: APIXABAN
     Indication: Cardiac disorder
  6. METOPROLOL [Concomitant]
     Active Substance: METOPROLOL
     Indication: Cardiac disorder

REACTIONS (6)
  - Metastases to spine [Unknown]
  - Movement disorder [Unknown]
  - Peripheral swelling [Unknown]
  - Myalgia [Unknown]
  - Weight increased [Unknown]
  - Wrong technique in product usage process [Unknown]
